FAERS Safety Report 17918273 (Version 1)
Quarter: 2020Q2

REPORT INFORMATION
  Report Type: Spontaneous
  Country: CA (occurrence: CA)
  Receive Date: 20200619
  Receipt Date: 20200619
  Transmission Date: 20200714
  Serious: Yes (Other)
  Sender: FDA-Public Use
  Company Number: CA-TEVA-2020-CA-1787835

PATIENT
  Age: 5 Year
  Sex: Male

DRUGS (2)
  1. MONTELUKAST TEVA [Suspect]
     Active Substance: MONTELUKAST SODIUM
     Indication: HYPERSENSITIVITY
     Dosage: 5 MG, 5 DOSAGES
     Dates: end: 20200522
  2. MONTELUKAST TEVA [Suspect]
     Active Substance: MONTELUKAST SODIUM
     Indication: ASTHMA

REACTIONS (12)
  - Obsessive-compulsive disorder [Recovering/Resolving]
  - Homicidal ideation [Recovered/Resolved]
  - Gait disturbance [Recovering/Resolving]
  - Depression [Recovering/Resolving]
  - Nightmare [Recovering/Resolving]
  - Abnormal behaviour [Recovering/Resolving]
  - Intentional self-injury [Recovering/Resolving]
  - Depressed mood [Recovering/Resolving]
  - Abdominal discomfort [Recovering/Resolving]
  - Frustration tolerance decreased [Recovering/Resolving]
  - Suicidal ideation [Recovered/Resolved]
  - Head discomfort [Recovering/Resolving]

NARRATIVE: CASE EVENT DATE: 20200530
